FAERS Safety Report 11913547 (Version 2)
Quarter: 2016Q1

REPORT INFORMATION
  Report Type: Report from Study
  Country: BE (occurrence: BE)
  Receive Date: 20160113
  Receipt Date: 20160129
  Transmission Date: 20160526
  Serious: Yes (Other)
  Sender: FDA-Public Use
  Company Number: BE-BEH-2016057673

PATIENT
  Age: 57 Year
  Sex: Female

DRUGS (1)
  1. HIZENTRA [Suspect]
     Active Substance: HUMAN IMMUNOGLOBULIN G
     Indication: NEOPLASM
     Dosage: ONE WEEK 20ML, THE OTHER WEEK 40ML
     Route: 058

REACTIONS (5)
  - Cataract [Recovering/Resolving]
  - Rhinitis [Recovering/Resolving]
  - Tracheitis [Recovering/Resolving]
  - Bronchitis [Recovering/Resolving]
  - Tunnel vision [Recovering/Resolving]

NARRATIVE: CASE EVENT DATE: 201512
